FAERS Safety Report 4692851-3 (Version None)
Quarter: 2005Q2

REPORT INFORMATION
  Report Type: 
  Country: None (occurrence: None)
  Receive Date: 20050617
  Receipt Date: 20050516
  Transmission Date: 20051028
  Serious: Yes (Death, Life-Threatening, Hospitalization)
  Sender: FDA-Public Use
  Company Number: 2005SE02933

PATIENT
  Age: 846 Month
  Sex: Male

DRUGS (12)
  1. ROSUVASTATIN [Suspect]
     Indication: CARDIAC FAILURE CHRONIC
     Route: 048
     Dates: start: 20040421
  2. CORDARONE [Suspect]
     Route: 048
     Dates: start: 20050212, end: 20050516
  3. SPIRONOL [Concomitant]
     Indication: CARDIAC FAILURE
     Route: 048
  4. NITRAZEPAM [Concomitant]
     Indication: INSOMNIA
     Route: 048
     Dates: start: 20050121, end: 20050419
  5. ACENOCUMAROL [Concomitant]
     Indication: ANTICOAGULANT THERAPY
     Route: 048
     Dates: start: 20050208, end: 20050513
  6. MADOPAR HBS [Concomitant]
     Indication: PARKINSONISM
     Route: 048
     Dates: start: 20040601
  7. MADOPAR [Concomitant]
     Indication: PARKINSONISM
     Route: 048
     Dates: start: 20040601
  8. RYTHMOL [Concomitant]
     Indication: ATRIAL FIBRILLATION
     Route: 048
     Dates: start: 20050212
  9. NITROCARD [Concomitant]
     Indication: CORONARY ARTERY DISEASE
     Route: 062
     Dates: start: 20050214
  10. DIGOXIN [Concomitant]
     Indication: CARDIAC FAILURE
     Route: 048
     Dates: start: 20050420, end: 20050512
  11. IMOVANE [Concomitant]
     Indication: INSOMNIA
     Route: 048
     Dates: start: 20050419
  12. FUROSEMIDE [Concomitant]
     Indication: CARDIAC FAILURE
     Route: 048
     Dates: start: 20050214

REACTIONS (10)
  - ASTHENIA [None]
  - BLOOD PH INCREASED [None]
  - CARDIAC FAILURE [None]
  - CARDIAC FAILURE CONGESTIVE [None]
  - HEPATIC FAILURE [None]
  - INTERNATIONAL NORMALISED RATIO INCREASED [None]
  - LEUKOCYTOSIS [None]
  - PNEUMONIA [None]
  - SHOCK [None]
  - TACHYCARDIA [None]
